FAERS Safety Report 18063739 (Version 2)
Quarter: 2020Q3

REPORT INFORMATION
  Report Type: Spontaneous
  Country: US (occurrence: US)
  Receive Date: 20200723
  Receipt Date: 20200812
  Transmission Date: 20201103
  Serious: No
  Sender: FDA-Public Use
  Company Number: US-VIFOR (INTERNATIONAL) INC.-VIT-2020-07908

PATIENT
  Age: 49 Year
  Sex: Female

DRUGS (19)
  1. VELTASSA [Suspect]
     Active Substance: PATIROMER
     Indication: HYPERKALAEMIA
     Route: 048
     Dates: start: 20171221, end: 202007
  2. AMLODIPINE [Concomitant]
     Active Substance: AMLODIPINE BESYLATE
  3. ASPIRIN. [Concomitant]
     Active Substance: ASPIRIN
  4. NEPHROCAPS [Concomitant]
     Active Substance: ASCORBIC ACID\BIOTIN\CYANOCOBALAMIN\FOLIC ACID\NIACIN\PANTOTHENIC ACID\PYRIDOXINE\RIBOFLAVIN\THIAMINE
  5. PHOSLO [Concomitant]
     Active Substance: CALCIUM ACETATE
  6. LANTUS [Concomitant]
     Active Substance: INSULIN GLARGINE
  7. NITROGLYCERINE [Concomitant]
     Active Substance: NITROGLYCERIN
  8. KAYEXALATE [Concomitant]
     Active Substance: SODIUM POLYSTYRENE SULFONATE
  9. PROVENTIL [Concomitant]
     Active Substance: ALBUTEROL
  10. LISINOPRIL. [Concomitant]
     Active Substance: LISINOPRIL
  11. METOPROLOL TARTRATE. [Concomitant]
     Active Substance: METOPROLOL TARTRATE
  12. REMERON [Concomitant]
     Active Substance: MIRTAZAPINE
  13. NOVOLOG [Concomitant]
     Active Substance: INSULIN ASPART
  14. ASPIRIN LOW DOSE [Concomitant]
     Active Substance: ASPIRIN
  15. ARANESP [Concomitant]
     Active Substance: DARBEPOETIN ALFA
  16. EMLA [Concomitant]
     Active Substance: LIDOCAINE\PRILOCAINE
  17. GABAPENTIN. [Concomitant]
     Active Substance: GABAPENTIN
  18. PROTONIX [Concomitant]
     Active Substance: PANTOPRAZOLE SODIUM
  19. SENSIPAR [Concomitant]
     Active Substance: CINACALCET HYDROCHLORIDE

REACTIONS (3)
  - Adverse event [Not Recovered/Not Resolved]
  - Pain [Not Recovered/Not Resolved]
  - Pruritus [Not Recovered/Not Resolved]

NARRATIVE: CASE EVENT DATE: 202007
